FAERS Safety Report 10424829 (Version 1)
Quarter: 2014Q3

REPORT INFORMATION
  Report Type: Spontaneous
  Country: US (occurrence: US)
  Receive Date: 20140902
  Receipt Date: 20140902
  Transmission Date: 20150326
  Serious: Yes (Other)
  Sender: FDA-Public Use
  Company Number: US-PFIZER INC-2014240564

PATIENT
  Age: 73 Year
  Sex: Female
  Weight: 86.17 kg

DRUGS (2)
  1. ADVIL [Suspect]
     Active Substance: IBUPROFEN
     Indication: BACK PAIN
     Dosage: 200 MG, 2X/DAY
     Route: 048
     Dates: start: 1984
  2. LOSARTAN AND HYDROCHLOROTHIAZIDE [Concomitant]
     Active Substance: HYDROCHLOROTHIAZIDE\LOSARTAN POTASSIUM
     Indication: HYPERTENSION
     Dosage: 50MG/12.5MG, 1X/DAY
     Dates: start: 201405

REACTIONS (4)
  - Poor quality drug administered [Unknown]
  - Cystitis [Unknown]
  - Kidney infection [Unknown]
  - Product coating issue [Unknown]

NARRATIVE: CASE EVENT DATE: 20140826
